FAERS Safety Report 5738930-0 (Version None)
Quarter: 2008Q2

REPORT INFORMATION
  Report Type: 
  Country: None (occurrence: None)
  Receive Date: 20080515
  Receipt Date: 20080505
  Transmission Date: 20081010
  Serious: Yes (Hospitalization, Other)
  Sender: FDA-Public Use
  Company Number: BE-ABBOTT-08P-013-0450347-00

PATIENT
  Sex: Female

DRUGS (12)
  1. HUMIRA [Suspect]
     Indication: RHEUMATOID ARTHRITIS
     Dates: start: 20040101, end: 20080214
  2. METHOTREXATE [Concomitant]
     Indication: DRUG USE FOR UNKNOWN INDICATION
     Route: 048
  3. PREDNISOLONE [Concomitant]
     Indication: DRUG USE FOR UNKNOWN INDICATION
  4. PROMETHAZ [Concomitant]
     Indication: MIGRAINE
  5. ACETAMINOPHEN [Concomitant]
     Indication: MIGRAINE
  6. CAFFEIN [Concomitant]
     Indication: MIGRAINE
  7. ERGOTAMINETARTRATE [Concomitant]
     Indication: MIGRAINE
  8. ZOLPIDEM EG [Concomitant]
     Indication: DRUG USE FOR UNKNOWN INDICATION
     Dosage: 4-6 PER DAY
  9. DURAPROX [Concomitant]
     Indication: DRUG USE FOR UNKNOWN INDICATION
     Dosage: 1/2 DAILY
  10. FOLIC ACID [Concomitant]
     Indication: DRUG USE FOR UNKNOWN INDICATION
  11. OMEPRAZOLE [Concomitant]
     Indication: DRUG USE FOR UNKNOWN INDICATION
  12. DOMPERIDONE [Concomitant]
     Indication: DRUG USE FOR UNKNOWN INDICATION

REACTIONS (8)
  - ANAEMIA [None]
  - EPILEPSY [None]
  - ESCHERICHIA SEPSIS [None]
  - HYPERTENSION [None]
  - PATHOGEN RESISTANCE [None]
  - PNEUMONIA [None]
  - RENAL FAILURE ACUTE [None]
  - SEPSIS [None]
